FAERS Safety Report 7910427-9 (Version None)
Quarter: 2011Q4

REPORT INFORMATION
  Report Type: 
  Country: None (occurrence: None)
  Receive Date: 20111111
  Receipt Date: 20111102
  Transmission Date: 20120403
  Serious: Yes (Hospitalization)
  Sender: FDA-Public Use
  Company Number: DE-ROCHE-801757

PATIENT
  Sex: Female
  Weight: 83 kg

DRUGS (5)
  1. FLUOROURACIL [Concomitant]
     Indication: COLORECTAL CANCER METASTATIC
     Dosage: APPLICATION FROM 8 AUG 2011 UNTIL 9 AUG 2011
     Route: 040
  2. LEUCOVORIN CALCIUM [Concomitant]
     Indication: COLORECTAL CANCER METASTATIC
     Dosage: APPLICATION FROM 8 AUG 2011 UNTIL 9 AUG 2011
     Route: 042
  3. IRINOTECAN HCL [Concomitant]
     Indication: COLORECTAL CANCER METASTATIC
     Dosage: APPLICATION ON 8 AUG 2011
     Route: 042
  4. AVASTIN [Suspect]
     Indication: COLORECTAL CANCER METASTATIC
     Dosage: APPLICATION ON 8 AUG 2011
     Route: 042
  5. FLUOROURACIL [Concomitant]
     Dosage: APPLICATION FROM 8 AUG 2011 UNTIL 9 AUG 2011
     Route: 042

REACTIONS (4)
  - DIZZINESS [None]
  - ATRIOVENTRICULAR BLOCK [None]
  - GENERAL PHYSICAL HEALTH DETERIORATION [None]
  - NAUSEA [None]
